FAERS Safety Report 11235331 (Version 1)
Quarter: 2015Q3

REPORT INFORMATION
  Report Type: Spontaneous
  Country: US (occurrence: US)
  Receive Date: 20150702
  Receipt Date: 20150702
  Transmission Date: 20151125
  Serious: No
  Sender: FDA-Public Use
  Company Number: US-MALLINCKRODT-T201403998

PATIENT
  Age: 37 Year
  Sex: Female

DRUGS (3)
  1. VERSED [Concomitant]
     Active Substance: MIDAZOLAM HYDROCHLORIDE
     Dosage: 2 MG, UNK
  2. OFIRMEV [Suspect]
     Active Substance: ACETAMINOPHEN
     Indication: POSTOPERATIVE ANALGESIA
     Dosage: 1000 MG, SINGLE
     Route: 042
     Dates: start: 20141103, end: 20141103
  3. FENTANYL. [Suspect]
     Active Substance: FENTANYL
     Dosage: 1000 ?G, UNK

REACTIONS (3)
  - Somnolence [Unknown]
  - Heart rate decreased [Unknown]
  - Nausea [Unknown]

NARRATIVE: CASE EVENT DATE: 20141103
